FAERS Safety Report 8822063 (Version 2)
Quarter: 2012Q4

REPORT INFORMATION
  Report Type: 
  Country: US (occurrence: US)
  Receive Date: 20121003
  Receipt Date: 20121015
  Transmission Date: 20130627
  Serious: Yes (Hospitalization, Other)
  Sender: FDA-Public Use
  Company Number: US-AMGEN-USASP2012061402

PATIENT
  Age: 69 Year
  Sex: Female
  Weight: 108.84 kg

DRUGS (24)
  1. ARANESP [Suspect]
     Indication: RENAL FAILURE CHRONIC
     Dosage: 200 mug, UNK
     Route: 058
     Dates: start: 20101203
  2. ALLOPURINOL [Concomitant]
     Dosage: 300 mg, UNK
  3. ALPHAGAN P [Concomitant]
     Dosage: 0.15 %, UNK
  4. ASPIRIN [Concomitant]
     Dosage: 81 mg, UNK
  5. CENTRUM SILVER                     /02363801/ [Concomitant]
     Dosage: 400-200 mcg
  6. CLONIDINE [Concomitant]
     Dosage: 0.1 mg, UNK
  7. COREG [Concomitant]
     Dosage: 12.5 mg, UNK
  8. CRESTOR [Concomitant]
     Dosage: 10 mg, UNK
  9. CULTURELLE [Concomitant]
     Dosage: 10 billion CFU, UNK
  10. FISH OIL [Concomitant]
     Dosage: 360-1200 mg
  11. GLUCOSAMINE CHONDROITIN            /01430901/ [Concomitant]
  12. GLUCOSAMINE + CHONDROITIN TRIPLE STRENGTH [Concomitant]
  13. HYDRALAZINE [Concomitant]
     Dosage: 20 mg, UNK
  14. LEVOXYL [Concomitant]
     Dosage: 25 mug, UNK
  15. NORVASC [Concomitant]
     Dosage: 5 mg, UNK
  16. PROZAC [Concomitant]
     Dosage: 20 mg, UNK
  17. REGLAN                             /00041901/ [Concomitant]
     Dosage: 10 mg, UNK
  18. VITAMIN D3 [Concomitant]
     Dosage: 1000 unit, UNK
  19. BUMETANIDE [Concomitant]
     Dosage: 2 mg, UNK
  20. COZAAR [Concomitant]
     Dosage: 25 mg, UNK
  21. HUMALOG [Concomitant]
     Dosage: 100 unit/ ml
  22. LANTUS [Concomitant]
     Dosage: 100 unit/ ml sub-Q
  23. NEXIUM                             /01479302/ [Concomitant]
     Dosage: 40 mg, UNK
  24. PROVIGIL [Concomitant]
     Dosage: 200 mg, UNK

REACTIONS (10)
  - Blood product transfusion dependent [Unknown]
  - Myocardial infarction [Unknown]
  - Coronary artery disease [Unknown]
  - Carotid artery stenosis [Unknown]
  - Cardiac failure congestive [Unknown]
  - Hypoacusis [Unknown]
  - Fatigue [Unknown]
  - Scab [Unknown]
  - Dyspnoea [Unknown]
  - Oedema peripheral [Unknown]
